FAERS Safety Report 8348788 (Version 5)
Quarter: 2014Q1

REPORT INFORMATION
  Report Type: Report from Study
  Country: EG (occurrence: EG)
  Receive Date: 20120123
  Receipt Date: 20140115
  Transmission Date: 20141002
  Serious: Yes (Death)
  Sender: FDA-Public Use
  Company Number: PHHO2012EG001271

PATIENT
  Age: 20 Year
  Sex: Female
  Weight: 50 kg

DRUGS (4)
  1. DESFERAL [Suspect]
     Indication: IRON OVERLOAD
     Dosage: 40 MG/KG
     Route: 058
     Dates: start: 20111026
  2. ICL670A [Suspect]
     Indication: IRON OVERLOAD
     Dosage: 30 MG/KG, QD
     Route: 048
     Dates: start: 20111026
  3. FOLIC ACID [Concomitant]
     Indication: ANAEMIA PROPHYLAXIS
     Dosage: 0.5 MG, QD
  4. INSULIN [Concomitant]
     Indication: DIABETES MELLITUS
     Dosage: 50 U, UNK

REACTIONS (3)
  - Altered state of consciousness [Fatal]
  - Pyrexia [Fatal]
  - Vomiting [Fatal]
